FAERS Safety Report 23889156 (Version 1)
Quarter: 2024Q2

REPORT INFORMATION
  Report Type: Spontaneous
  Country: US (occurrence: US)
  Receive Date: 20240523
  Receipt Date: 20240523
  Transmission Date: 20240716
  Serious: No
  Sender: FDA-Public Use
  Company Number: US-TARO PHARMACEUTICALS USA INC.-2023TAR00616

PATIENT
  Sex: Female

DRUGS (1)
  1. TERCONAZOLE [Suspect]
     Active Substance: TERCONAZOLE
     Indication: Product used for unknown indication
     Dosage: UNK
     Route: 067
     Dates: start: 20230526

REACTIONS (2)
  - Chromaturia [Unknown]
  - Drug ineffective [Unknown]

NARRATIVE: CASE EVENT DATE: 20230526
